FAERS Safety Report 4611822-6 (Version None)
Quarter: 2005Q2

REPORT INFORMATION
  Report Type: 
  Country: None (occurrence: None)
  Receive Date: 20050308
  Receipt Date: 20050114
  Transmission Date: 20051028
  Serious: Yes (Other)
  Sender: FDA-Public Use
  Company Number: 2005UW00732

PATIENT

DRUGS (2)
  1. CRESTOR [Suspect]
     Dosage: 20 MG PO
     Route: 048
  2. NIACIN [Concomitant]

REACTIONS (1)
  - LIPIDS [None]
